FAERS Safety Report 6604046-4 (Version None)
Quarter: 2010Q1

REPORT INFORMATION
  Report Type: 
  Country: None (occurrence: None)
  Receive Date: 20100226
  Receipt Date: 20090424
  Transmission Date: 20100710
  Serious: No
  Sender: FDA-Public Use
  Company Number: A0780570A

PATIENT
  Sex: Female

DRUGS (3)
  1. LAMICTAL CD [Suspect]
     Indication: EPILEPSY
     Route: 048
  2. BUPIVACAINE HCL [Suspect]
     Route: 042
     Dates: start: 20090423
  3. FENTANYL [Concomitant]

REACTIONS (3)
  - ANAESTHETIC COMPLICATION [None]
  - DRUG EXPOSURE DURING PREGNANCY [None]
  - DRUG INTERACTION [None]
